FAERS Safety Report 17574944 (Version 1)
Quarter: 2020Q1

REPORT INFORMATION
  Report Type: Spontaneous
  Country: CN (occurrence: CN)
  Receive Date: 20200324
  Receipt Date: 20200324
  Transmission Date: 20200409
  Serious: Yes (Other)
  Sender: FDA-Public Use
  Company Number: CN-ROCHE-2566893

PATIENT
  Age: 31 Year
  Sex: Female
  Weight: 61 kg

DRUGS (24)
  1. AVASTIN [Suspect]
     Active Substance: BEVACIZUMAB
     Indication: METASTASES TO LIVER
     Dosage: BEVACIZUMAB AND XELOX REGIMEN 2ND CYCLE
     Route: 065
     Dates: start: 20180306
  2. OXALIPLATIN. [Suspect]
     Active Substance: OXALIPLATIN
     Dosage: BEVACIZUMAB AND FOLFOXIRI REGIMEN, DAY1
     Route: 065
     Dates: start: 2019
  3. XELODA [Suspect]
     Active Substance: CAPECITABINE
     Dosage: DAY1 TO 14, 2 TABLETS AT MORNING 3 AT NIGHT
     Route: 048
     Dates: start: 20180202
  4. AVASTIN [Suspect]
     Active Substance: BEVACIZUMAB
     Indication: COLON CANCER METASTATIC
     Dosage: DAY1
     Route: 065
     Dates: start: 20180704, end: 20190224
  5. REGORAFENIB. [Concomitant]
     Active Substance: REGORAFENIB
     Indication: COLON CANCER METASTATIC
  6. XELODA [Suspect]
     Active Substance: CAPECITABINE
     Indication: METASTASES TO ABDOMINAL CAVITY
     Dosage: BEVACIZUMAB AND XELOX REGIMEN 2 ND CYCLE
     Route: 048
     Dates: start: 20180306
  7. OXALIPLATIN. [Suspect]
     Active Substance: OXALIPLATIN
     Indication: COLON CANCER METASTATIC
     Dosage: BEVACIZUMAB AND FOLFOXIRI REGIMEN, DAY1
     Route: 065
     Dates: start: 20180429, end: 20180628
  8. CALCIUM FOLINATE [Suspect]
     Active Substance: LEUCOVORIN CALCIUM
     Indication: METASTASES TO ABDOMINAL CAVITY
     Dosage: BEVACIZUMAB AND FOLFOXIRI REGIMEN, DAY1
     Route: 065
     Dates: start: 2019
  9. IRINOTECAN [Suspect]
     Active Substance: IRINOTECAN
     Indication: METASTASES TO ABDOMINAL CAVITY
     Dosage: BEVACIZUMAB AND FOLFOXIRI REGIMEN, DAY1
     Route: 065
     Dates: start: 2019
  10. XELODA [Suspect]
     Active Substance: CAPECITABINE
     Indication: METASTASES TO LIVER
     Dosage: XELOX REGIMEN 1CYCLE
     Route: 048
     Dates: start: 20180213
  11. OXALIPLATIN. [Suspect]
     Active Substance: OXALIPLATIN
     Indication: METASTASES TO ABDOMINAL CAVITY
     Dosage: BEVACIZUMAB AND XELOX REGIMEN 2CYCLES
     Route: 065
     Dates: start: 20180306
  12. IRINOTECAN [Suspect]
     Active Substance: IRINOTECAN
     Indication: COLON CANCER METASTATIC
  13. CALCIUM FOLINATE [Suspect]
     Active Substance: LEUCOVORIN CALCIUM
     Indication: METASTASES TO LIVER
     Dosage: BEVACIZUMAB AND FOLFOXIRI REGIMEN, DAY1
     Route: 065
     Dates: start: 20180429, end: 20180628
  14. FLUOROURACIL. [Suspect]
     Active Substance: FLUOROURACIL
     Indication: COLON CANCER METASTATIC
  15. REGORAFENIB. [Concomitant]
     Active Substance: REGORAFENIB
     Indication: METASTASES TO LIVER
     Route: 065
     Dates: start: 201906
  16. REGORAFENIB. [Concomitant]
     Active Substance: REGORAFENIB
     Indication: METASTASES TO ABDOMINAL CAVITY
     Route: 065
     Dates: start: 20190615, end: 2019
  17. AVASTIN [Suspect]
     Active Substance: BEVACIZUMAB
     Dosage: BEVACIZUMAB AND FOLFOXIRI REGIMEN, DAY1
     Route: 065
     Dates: start: 2019
  18. CALCIUM FOLINATE [Suspect]
     Active Substance: LEUCOVORIN CALCIUM
     Indication: COLON CANCER METASTATIC
  19. XELODA [Suspect]
     Active Substance: CAPECITABINE
     Indication: COLON CANCER METASTATIC
     Dosage: DAY1 TO14, EVERY 21 DAYS AS ONE CYCLE
     Route: 048
     Dates: start: 20180704
  20. AVASTIN [Suspect]
     Active Substance: BEVACIZUMAB
     Indication: METASTASES TO ABDOMINAL CAVITY
     Dosage: BEVACIZUMAB AND FOLFOXIRI REGIMEN, DAY1
     Route: 065
     Dates: start: 20180429, end: 20180628
  21. OXALIPLATIN. [Suspect]
     Active Substance: OXALIPLATIN
     Indication: METASTASES TO LIVER
     Dosage: XELOX REGIMEN 1CYCLE
     Route: 065
     Dates: start: 20180213
  22. IRINOTECAN [Suspect]
     Active Substance: IRINOTECAN
     Indication: METASTASES TO LIVER
     Dosage: BEVACIZUMAB AND FOLFOXIRI REGIMEN, DAY1
     Route: 065
     Dates: start: 20180429, end: 20180628
  23. FLUOROURACIL. [Suspect]
     Active Substance: FLUOROURACIL
     Indication: METASTASES TO LIVER
     Dosage: BEVACIZUMAB AND FOLFOXIRI REGIMEN, DAY1, 2
     Route: 065
     Dates: start: 20180429, end: 20180628
  24. FLUOROURACIL. [Suspect]
     Active Substance: FLUOROURACIL
     Indication: METASTASES TO ABDOMINAL CAVITY
     Dosage: BEVACIZUMAB AND FOLFOXIRI REGIMEN, DAY1,2
     Route: 065
     Dates: start: 2019

REACTIONS (10)
  - Nausea [Unknown]
  - Anaemia [Unknown]
  - Pyrexia [Unknown]
  - Asthenia [Unknown]
  - Tinnitus [Unknown]
  - Palmar-plantar erythrodysaesthesia syndrome [Unknown]
  - Menorrhagia [Unknown]
  - Diarrhoea [Unknown]
  - Bone marrow failure [Unknown]
  - Agranulocytosis [Unknown]

NARRATIVE: CASE EVENT DATE: 201906
